FAERS Safety Report 16683788 (Version 2)
Quarter: 2019Q3

REPORT INFORMATION
  Report Type: Spontaneous
  Country: AU (occurrence: AU)
  Receive Date: 20190808
  Receipt Date: 20190815
  Transmission Date: 20191004
  Serious: Yes (Death, Hospitalization)
  Sender: FDA-Public Use
  Company Number: AU-EISAI MEDICAL RESEARCH-EC-2019-060363

PATIENT
  Age: 70 Year
  Sex: Male
  Weight: 74 kg

DRUGS (1)
  1. LENVIMA [Suspect]
     Active Substance: LENVATINIB
     Indication: HEPATOCELLULAR CARCINOMA
     Route: 048
     Dates: start: 20190623, end: 20190707

REACTIONS (4)
  - Sepsis [Fatal]
  - Acute kidney injury [Fatal]
  - Multiple organ dysfunction syndrome [Unknown]
  - Acidosis [Fatal]

NARRATIVE: CASE EVENT DATE: 2019
